FAERS Safety Report 6520673-7 (Version None)
Quarter: 2009Q4

REPORT INFORMATION
  Report Type: 
  Country: None (occurrence: None)
  Receive Date: 20091229
  Receipt Date: 20091229
  Transmission Date: 20100525
  Serious: Yes (Disabling)
  Sender: FDA-Public Use
  Company Number: US-ABBOTT-09P-163-0606143-00

PATIENT
  Sex: Female
  Weight: 89.438 kg

DRUGS (20)
  1. HUMIRA [Suspect]
     Indication: CROHN'S DISEASE
     Dates: start: 20080802, end: 20091022
  2. PREDNISONE [Concomitant]
     Indication: CROHN'S DISEASE
  3. PREDNISONE [Concomitant]
  4. IRON [Concomitant]
     Indication: DRUG USE FOR UNKNOWN INDICATION
  5. PROTONIX [Concomitant]
     Indication: DRUG USE FOR UNKNOWN INDICATION
  6. PIROXICAM [Concomitant]
     Indication: DRUG USE FOR UNKNOWN INDICATION
  7. PREMARIN [Concomitant]
     Indication: DRUG USE FOR UNKNOWN INDICATION
  8. EFFEXOR [Concomitant]
     Indication: DRUG USE FOR UNKNOWN INDICATION
  9. WELLBUTRIN [Concomitant]
     Indication: DRUG USE FOR UNKNOWN INDICATION
  10. FORTEO [Concomitant]
     Indication: DRUG USE FOR UNKNOWN INDICATION
  11. METOPROLOL TARTRATE [Concomitant]
     Indication: DRUG USE FOR UNKNOWN INDICATION
  12. PROCHLORPERAZINE [Concomitant]
     Indication: DRUG USE FOR UNKNOWN INDICATION
  13. XANAX [Concomitant]
     Indication: DRUG USE FOR UNKNOWN INDICATION
  14. AMBIEN [Concomitant]
     Indication: DRUG USE FOR UNKNOWN INDICATION
  15. TYLENOL W/ CODEINE NO. 3 [Concomitant]
     Indication: DRUG USE FOR UNKNOWN INDICATION
  16. OXYCODONE HCL [Concomitant]
     Indication: DRUG USE FOR UNKNOWN INDICATION
  17. VITAMIN D [Concomitant]
     Indication: DRUG USE FOR UNKNOWN INDICATION
     Dosage: DOES NOT TAKE REGULARLY
  18. LYRICA [Concomitant]
     Indication: DRUG USE FOR UNKNOWN INDICATION
  19. CYMBALTA [Concomitant]
     Indication: DRUG USE FOR UNKNOWN INDICATION
  20. MERCAPTOPURINE [Concomitant]
     Indication: DRUG USE FOR UNKNOWN INDICATION

REACTIONS (4)
  - ABASIA [None]
  - ARTHRALGIA [None]
  - DEMYELINATING POLYNEUROPATHY [None]
  - MYOPATHY [None]
